FAERS Safety Report 17239847 (Version 1)
Quarter: 2020Q1

REPORT INFORMATION
  Report Type: Spontaneous
  Country: ES (occurrence: ES)
  Receive Date: 20200106
  Receipt Date: 20200106
  Transmission Date: 20200409
  Serious: Yes (Hospitalization, Other)
  Sender: FDA-Public Use
  Company Number: ES-AUROBINDO-AUR-APL-2020-000474

PATIENT
  Age: 91 Year
  Sex: Male

DRUGS (5)
  1. LANTUS [Suspect]
     Active Substance: INSULIN GLARGINE
     Indication: TYPE 2 DIABETES MELLITUS
     Dosage: 28 INTERNATIONAL UNIT, TWO TIMES A DAY
     Route: 058
     Dates: start: 20141128
  2. LINAGLIPTINA [Concomitant]
     Active Substance: LINAGLIPTIN
     Indication: TYPE 2 DIABETES MELLITUS
     Dosage: 5 MILLIGRAM, ONCE A DAY
     Route: 048
     Dates: start: 20160414
  3. DUTASTERIDE;TAMSULOSIN [Concomitant]
     Indication: BENIGN PROSTATIC HYPERPLASIA
     Dosage: (0,4/0,5) MG 1 TOMA AL DIA
     Route: 048
     Dates: start: 20160211
  4. GABAPENTINA [Concomitant]
     Active Substance: GABAPENTIN
     Indication: MONONEURITIS
     Dosage: 100 MILLIGRAM, TWO TIMES A DAY
     Route: 048
     Dates: start: 20160601
  5. CARVEDILOL FILM-COATED TABLETS 6.25MG [Suspect]
     Active Substance: CARVEDILOL
     Indication: ACUTE MYOCARDIAL INFARCTION
     Dosage: 3.12 MILLIGRAM, ONCE A DAY
     Route: 048
     Dates: start: 20140920, end: 20191213

REACTIONS (2)
  - Bradycardia [Recovered/Resolved]
  - Hypoglycaemia [Recovered/Resolved]

NARRATIVE: CASE EVENT DATE: 20191212
